FAERS Safety Report 16357589 (Version 3)
Quarter: 2021Q1

REPORT INFORMATION
  Report Type: Spontaneous
  Country: JP (occurrence: JP)
  Receive Date: 20190527
  Receipt Date: 20210120
  Transmission Date: 20210419
  Serious: Yes (Death, Hospitalization, Other)
  Sender: FDA-Public Use
  Company Number: JP-009507513-1905JPN002466J

PATIENT
  Age: 55 Year
  Sex: Male

DRUGS (1)
  1. KEYTRUDA [Suspect]
     Active Substance: PEMBROLIZUMAB
     Indication: MALIGNANT NEOPLASM OF RENAL PELVIS
     Dosage: 200 MILLIGRAM, Q3W
     Route: 041
     Dates: start: 20180719, end: 20190507

REACTIONS (3)
  - Encephalitis [Recovered/Resolved]
  - Meningitis [Recovered/Resolved]
  - Death [Fatal]

NARRATIVE: CASE EVENT DATE: 20190521
